FAERS Safety Report 10041514 (Version 1)
Quarter: 2014Q1

REPORT INFORMATION
  Report Type: Spontaneous
  Country: GB (occurrence: GB)
  Receive Date: 20140327
  Receipt Date: 20140327
  Transmission Date: 20141002
  Serious: Yes (Other)
  Sender: FDA-Public Use
  Company Number: GB-US-EMD SERONO, INC.-7277232

PATIENT
  Age: 36 Year
  Sex: Female

DRUGS (2)
  1. REBIF [Suspect]
     Indication: PRODUCT USED FOR UNKNOWN INDICATION
     Route: 058
     Dates: start: 20131113, end: 20140123
  2. CERAZETTE                          /00754001/ [Concomitant]
     Indication: ORAL CONTRACEPTION
     Route: 048

REACTIONS (5)
  - Menorrhagia [Unknown]
  - Nausea [Unknown]
  - Weight decreased [Unknown]
  - Thrombocytopenia [Recovered/Resolved]
  - Fatigue [Unknown]
